FAERS Safety Report 6726031-4 (Version None)
Quarter: 2010Q2

REPORT INFORMATION
  Report Type: 
  Country: None (occurrence: None)
  Receive Date: 20100514
  Receipt Date: 20100506
  Transmission Date: 20101027
  Serious: Yes (Hospitalization)
  Sender: FDA-Public Use
  Company Number: DE-ABBOTT-10P-062-0644146-00

PATIENT
  Age: 75 Year
  Sex: Female

DRUGS (10)
  1. VALPROATE SODIUM [Suspect]
     Indication: EPILEPSY
     Route: 048
     Dates: start: 20080401, end: 20080819
  2. VALPROATE SODIUM [Interacting]
     Route: 048
     Dates: start: 20080820
  3. VALPROATE SODIUM [Interacting]
     Route: 048
     Dates: start: 20080826
  4. FENTANYL [Interacting]
     Indication: PAIN
     Dosage: PLASTER; CUTANEOUS
     Route: 062
     Dates: start: 20070101, end: 20080719
  5. CLOBAZAM [Interacting]
     Indication: EPILEPSY
     Route: 048
     Dates: end: 20080907
  6. OMEPRAZOLE [Concomitant]
     Indication: DRUG USE FOR UNKNOWN INDICATION
     Dates: start: 20040101
  7. BISOPROLOL [Concomitant]
     Indication: DRUG USE FOR UNKNOWN INDICATION
     Dates: start: 20000101
  8. CALCIUM W/COLECALCIFEROL [Concomitant]
     Indication: DRUG USE FOR UNKNOWN INDICATION
     Dates: start: 20020101
  9. FOSAMAX [Concomitant]
     Indication: DRUG USE FOR UNKNOWN INDICATION
     Dates: start: 20020101
  10. FUROSEMIDE [Concomitant]
     Indication: DRUG USE FOR UNKNOWN INDICATION
     Dates: start: 20020101

REACTIONS (5)
  - CHOLESTATIC LIVER INJURY [None]
  - DRUG INTERACTION [None]
  - JAUNDICE [None]
  - SOMNOLENCE [None]
  - TRANSAMINASES INCREASED [None]
